FAERS Safety Report 8687225 (Version 2)
Quarter: 2012Q4

REPORT INFORMATION
  Report Type: 
  Country: AU (occurrence: AU)
  Receive Date: 20120727
  Receipt Date: 20121010
  Transmission Date: 20130627
  Serious: Yes (Other)
  Sender: FDA-Public Use
  Company Number: PHHY2012AU064150

PATIENT
  Age: 75 None
  Sex: Female
  Weight: 82 kg

DRUGS (7)
  1. ACLASTA [Suspect]
     Indication: TRAUMATIC FRACTURE
     Dosage: 5 mg, UNK
     Route: 042
     Dates: start: 20101130
  2. ACLASTA [Suspect]
     Dosage: 5 mg, UNK
     Route: 042
     Dates: start: 20120306
  3. ADALAT OROS [Concomitant]
     Indication: HYPERTENSION
     Dosage: 30 mg, UNK
     Route: 048
  4. ALLOPURINOL [Concomitant]
     Indication: GOUT
     Dosage: 100 mg, UNK
     Route: 048
  5. NEO-B12 [Concomitant]
     Indication: VITAMIN B12 DECREASED
  6. VITAMIN D [Concomitant]
  7. PANADOL [Concomitant]
     Dosage: 2000 mg, UNK
     Route: 048

REACTIONS (2)
  - Fall [Unknown]
  - Clavicle fracture [Recovered/Resolved with Sequelae]
